FAERS Safety Report 5914633-4 (Version None)
Quarter: 2008Q4

REPORT INFORMATION
  Report Type: 
  Country: None (occurrence: None)
  Receive Date: 20081010
  Receipt Date: 20080807
  Transmission Date: 20090506
  Serious: No
  Sender: FDA-Public Use
  Company Number: A0741576A

PATIENT
  Age: 56 Year
  Sex: Male

DRUGS (8)
  1. REQUIP XL [Suspect]
     Indication: MUSCULOSKELETAL DISORDER
     Dosage: 8MG PER DAY
     Route: 048
     Dates: start: 20080701
  2. ROPINIROLE [Suspect]
     Indication: MUSCULOSKELETAL DISORDER
     Dosage: 4MG PER DAY
     Route: 048
     Dates: start: 20080401
  3. DIOVAN [Concomitant]
  4. XANAX [Concomitant]
  5. XYZAL [Concomitant]
  6. MOBIC [Concomitant]
  7. LUNESTA [Concomitant]
  8. LYRICA [Concomitant]

REACTIONS (3)
  - DISTURBANCE IN ATTENTION [None]
  - FATIGUE [None]
  - SOMNOLENCE [None]
